FAERS Safety Report 5957334-9 (Version None)
Quarter: 2008Q4

REPORT INFORMATION
  Report Type: 
  Country: None (occurrence: None)
  Receive Date: 20081118
  Receipt Date: 20081110
  Transmission Date: 20090506
  Serious: Yes (Other)
  Sender: FDA-Public Use
  Company Number: US-ELI_LILLY_AND_COMPANY-US200811002016

PATIENT
  Sex: Female

DRUGS (9)
  1. BYETTA [Suspect]
     Indication: TYPE 2 DIABETES MELLITUS
     Dosage: 5 UG, 2/D
     Route: 058
     Dates: start: 20070101
  2. METFORMIN HCL [Concomitant]
     Dosage: 1250 MG, 2/D
  3. NORVASC [Concomitant]
     Dosage: 10 MG, DAILY (1/D)
  4. LOPRESSOR [Concomitant]
     Dosage: 25 MG, 3/D
  5. IRON [Concomitant]
     Dosage: 325 MG, DAILY (1/D)
  6. LASIX [Concomitant]
     Dosage: 40 MG, DAILY (1/D)
  7. LISINOPRIL [Concomitant]
     Dosage: 40 MG, DAILY (1/D)
  8. COUMADIN [Concomitant]
     Dosage: 6.5 MG, UNK
  9. VITAMIN B-12 [Concomitant]
     Dosage: UNK, MONTHLY (1/M)

REACTIONS (1)
  - ANAEMIA [None]
